FAERS Safety Report 15193054 (Version 1)
Quarter: 2018Q3

REPORT INFORMATION
  Report Type: Spontaneous
  Country: US (occurrence: US)
  Receive Date: 20180725
  Receipt Date: 20180725
  Transmission Date: 20181010
  Serious: Yes (Hospitalization)
  Sender: FDA-Public Use
  Company Number: US-ROCHE-2158226

PATIENT
  Sex: Male

DRUGS (1)
  1. OCREVUS [Suspect]
     Active Substance: OCRELIZUMAB
     Indication: MULTIPLE SCLEROSIS
     Route: 065
     Dates: start: 20180329

REACTIONS (6)
  - Sepsis [Unknown]
  - Kidney infection [Unknown]
  - Muscle spasms [Unknown]
  - Feeling hot [Unknown]
  - Asthenia [Unknown]
  - Dizziness [Unknown]
